FAERS Safety Report 8327422-0 (Version None)
Quarter: 2012Q2

REPORT INFORMATION
  Report Type: 
  Country: None (occurrence: None)
  Receive Date: 20120424
  Receipt Date: 20120411
  Transmission Date: 20120825
  Serious: Yes (Death, Hospitalization)
  Sender: FDA-Public Use
  Company Number: 2012PROUSA00993

PATIENT
  Age: 75 Year
  Sex: Male
  Weight: 71.2 kg

DRUGS (3)
  1. PROVENGE [Suspect]
     Indication: PROSTATE CANCER METASTATIC
     Dosage: 250 ML, SINGLE, INTRAVENOUS
     Route: 042
     Dates: start: 20120112, end: 20120112
  2. ZOMETA [Concomitant]
  3. PERCOCET [Concomitant]

REACTIONS (13)
  - RENAL FAILURE [None]
  - CONSTIPATION [None]
  - POST PROCEDURAL HAEMORRHAGE [None]
  - ASTHENIA [None]
  - LUMBAR SPINAL STENOSIS [None]
  - LIVER FUNCTION TEST ABNORMAL [None]
  - DERMATITIS [None]
  - ANAEMIA [None]
  - ALANINE AMINOTRANSFERASE INCREASED [None]
  - LOBAR PNEUMONIA [None]
  - FALL [None]
  - BACK PAIN [None]
  - BLOOD ALKALINE PHOSPHATASE INCREASED [None]
